FAERS Safety Report 10160562 (Version 2)
Quarter: 2014Q2

REPORT INFORMATION
  Report Type: Spontaneous
  Country: BR (occurrence: BR)
  Receive Date: 20140508
  Receipt Date: 20140519
  Transmission Date: 20141212
  Serious: Yes (Other)
  Sender: FDA-Public Use
  Company Number: BR-PFIZER INC-2014124669

PATIENT
  Age: 82 Year
  Sex: Female
  Weight: 75 kg

DRUGS (6)
  1. LYRICA [Suspect]
     Indication: DIABETIC NEUROPATHY
     Dosage: UNK
     Route: 048
     Dates: start: 201312
  2. LYRICA [Suspect]
     Indication: HYPOAESTHESIA
     Dosage: EVERY OTHER DAY
     Route: 048
  3. GALVUS [Concomitant]
  4. ATENOLOL [Concomitant]
  5. PURAN T4 [Concomitant]
  6. MACRODANTINA [Concomitant]

REACTIONS (11)
  - Fall [Unknown]
  - Dizziness [Recovering/Resolving]
  - Head injury [Unknown]
  - Limb injury [Unknown]
  - Feeling hot [Unknown]
  - Memory impairment [Unknown]
  - Somnolence [Unknown]
  - Rash [Unknown]
  - Malaise [Unknown]
  - Pruritus [Unknown]
  - Blister [Unknown]
